FAERS Safety Report 6933014-8 (Version None)
Quarter: 2010Q3

REPORT INFORMATION
  Report Type: 
  Country: None (occurrence: None)
  Receive Date: 20100818
  Receipt Date: 20100818
  Transmission Date: 20110219
  Serious: No
  Sender: FDA-Public Use
  Company Number: None

PATIENT
  Age: 54 Year
  Sex: Female
  Weight: 58.9676 kg

DRUGS (1)
  1. RANITIDINE [Suspect]
     Indication: HYPERCHLORHYDRIA
     Dosage: 1 TABLET TWICE A DAY PO
     Route: 048
     Dates: start: 20100727, end: 20100814

REACTIONS (4)
  - FATIGUE [None]
  - HEADACHE [None]
  - PAIN [None]
  - PRODUCT ODOUR ABNORMAL [None]
